FAERS Safety Report 20078135 (Version 2)
Quarter: 2021Q4

REPORT INFORMATION
  Report Type: Spontaneous
  Country: US (occurrence: US)
  Receive Date: 20211117
  Receipt Date: 20211118
  Transmission Date: 20220303
  Serious: Yes (Hospitalization)
  Sender: FDA-Public Use
  Company Number: US-JNJFOC-20211122576

PATIENT
  Age: 25 Year
  Sex: Male

DRUGS (1)
  1. SUDAFED 24 HOUR [Suspect]
     Active Substance: PSEUDOEPHEDRINE HYDROCHLORIDE
     Indication: Nasal congestion
     Route: 048
     Dates: start: 20211103, end: 20211107

REACTIONS (7)
  - Feeling jittery [Unknown]
  - Accidental overdose [Unknown]
  - Insomnia [Unknown]
  - Discoloured vomit [Unknown]
  - Dizziness [Unknown]
  - Nervousness [Unknown]
  - Heart rate increased [Unknown]

NARRATIVE: CASE EVENT DATE: 20211104
